FAERS Safety Report 7288328-1 (Version None)
Quarter: 2011Q1

REPORT INFORMATION
  Report Type: 
  Country: None (occurrence: None)
  Receive Date: 20110211
  Receipt Date: 20110204
  Transmission Date: 20110831
  Serious: Yes (Other)
  Sender: FDA-Public Use
  Company Number: GB-PFIZER INC-2011026746

PATIENT
  Age: 57 Year
  Sex: Male

DRUGS (1)
  1. EPANUTIN [Suspect]
     Dosage: 100 MG, 2X/DAY
     Dates: start: 19710101

REACTIONS (4)
  - PRODUCT COLOUR ISSUE [None]
  - PRURITUS [None]
  - PRODUCT SIZE ISSUE [None]
  - WHEEZING [None]
